FAERS Safety Report 7055315-8 (Version None)
Quarter: 2010Q4

REPORT INFORMATION
  Report Type: 
  Country: None (occurrence: None)
  Receive Date: 20101021
  Receipt Date: 20101012
  Transmission Date: 20110411
  Serious: Yes (Disabling)
  Sender: FDA-Public Use
  Company Number: GB-ELI_LILLY_AND_COMPANY-GB201009002131

PATIENT
  Age: 72 Year
  Sex: Male
  Weight: 98 kg

DRUGS (15)
  1. BYETTA [Suspect]
     Indication: DIABETES MELLITUS
     Dosage: 5 UG, UNKNOWN
     Route: 058
     Dates: start: 20100609, end: 20100824
  2. ASPIRIN [Concomitant]
     Dosage: 75 MG, 2/D
     Route: 048
     Dates: start: 20030325
  3. ATENOLOL [Concomitant]
     Dosage: 50 MG, UNK
     Route: 048
     Dates: start: 20030325
  4. BENDROFLUMETHIAZIDE [Concomitant]
     Dosage: 2.5 MG, DAILY (1/D)
     Route: 048
     Dates: start: 20030822
  5. CANDESARTAN CILEXETIL [Concomitant]
     Dosage: 8 MG, 2/D
     Route: 048
     Dates: start: 20020121
  6. DOXAZOSIN MESYLATE [Concomitant]
     Dosage: 8 MG, 2/D
     Route: 048
     Dates: start: 20100701
  7. GLUCOPHAGE [Concomitant]
     Dosage: 1000 MG, 2/D
     Route: 048
     Dates: start: 20100107
  8. NITROGLYCERIN [Concomitant]
     Dosage: 400 UG, AS NEEDED
     Dates: start: 20100709
  9. IBUPROFEN [Concomitant]
     Dosage: 1 D/F, 3/D
     Route: 061
     Dates: start: 20040420
  10. LANSOPRAZOL [Concomitant]
     Dosage: 30 MG, DAILY (1/D)
     Route: 048
     Dates: start: 20091104
  11. LYRICA [Concomitant]
     Dosage: 75 MG, 2/D
     Route: 048
     Dates: start: 20100107
  12. RAMIPRIL [Concomitant]
     Dosage: 10 MG, DAILY (1/D)
     Route: 048
     Dates: start: 20090130
  13. SIMVASTATIN [Concomitant]
     Dosage: 20 MG, DAILY (1/D)
     Route: 048
     Dates: start: 20031021
  14. VARDENAFIL HYDROCHLORIDE (LEVITRA) [Concomitant]
     Dosage: 10 MG, UNK
     Route: 048
     Dates: start: 20040420
  15. XYLOPROCT [Concomitant]
     Dosage: UNK, AS NEEDED
     Route: 061
     Dates: start: 20090318

REACTIONS (1)
  - PAIN IN EXTREMITY [None]
